FAERS Safety Report 6191357-2 (Version None)
Quarter: 2009Q2

REPORT INFORMATION
  Report Type: 
  Country: None (occurrence: None)
  Receive Date: 20090515
  Receipt Date: 20070501
  Transmission Date: 20091009
  Serious: Yes (Hospitalization, Other)
  Sender: FDA-Public Use
  Company Number: US-ASTRAZENECA-2006UW11147

PATIENT
  Age: 646 Month
  Sex: Male
  Weight: 72.6 kg

DRUGS (16)
  1. SEROQUEL [Suspect]
     Indication: ANXIETY
     Route: 048
     Dates: start: 20000101
  2. SEROQUEL [Suspect]
     Dosage: 25-500 MG
     Route: 048
     Dates: start: 20031210
  3. ZYPREXA [Suspect]
     Route: 065
  4. STELAZINE [Concomitant]
     Route: 065
  5. THORAZINE [Concomitant]
     Route: 065
  6. METHADONE HCL [Concomitant]
     Route: 065
  7. LANTUS [Concomitant]
     Dosage: 15-35 UNIT
     Route: 030
  8. ABILIFY [Concomitant]
     Route: 048
  9. PROTONIX [Concomitant]
     Route: 048
  10. VICODIN [Concomitant]
     Route: 048
  11. GLIPIZIDE [Concomitant]
     Dosage: 5-10 MG
     Route: 048
  12. MORPHINE SULFATE [Concomitant]
     Dosage: 1-2 MG
     Route: 042
  13. PHENERGAN [Concomitant]
     Route: 030
  14. AMBIEN [Concomitant]
     Route: 048
  15. ATIVAN [Concomitant]
     Route: 048
  16. AMITRIPTLINE HYDROCHLORIDE TAB [Concomitant]
     Route: 048

REACTIONS (11)
  - BENIGN PROSTATIC HYPERPLASIA [None]
  - CELLULITIS [None]
  - CHILLS [None]
  - DIABETES MELLITUS [None]
  - KETOACIDOSIS [None]
  - NAUSEA [None]
  - PYREXIA [None]
  - SIALOADENITIS [None]
  - SUBCUTANEOUS ABSCESS [None]
  - THROMBOCYTOPENIA [None]
  - VOMITING [None]
